FAERS Safety Report 5628366-5 (Version None)
Quarter: 2008Q1

REPORT INFORMATION
  Report Type: 
  Country: None (occurrence: None)
  Receive Date: 20080215
  Receipt Date: 20080205
  Transmission Date: 20080703
  Serious: Yes (Hospitalization)
  Sender: FDA-Public Use
  Company Number: US-ABBOTT-08P-163-0436932-00

PATIENT
  Sex: Female
  Weight: 72.186 kg

DRUGS (2)
  1. HUMIRA [Suspect]
     Indication: RHEUMATOID ARTHRITIS
     Route: 058
     Dates: start: 20030101, end: 20060101
  2. HUMIRA [Suspect]
     Route: 058
     Dates: start: 20080205

REACTIONS (4)
  - CHOLECYSTITIS [None]
  - HERPES ZOSTER [None]
  - INJECTION SITE PAIN [None]
  - MYOCARDITIS [None]
